APPROVED DRUG PRODUCT: COLISTIMETHATE SODIUM
Active Ingredient: COLISTIMETHATE SODIUM
Strength: EQ 150MG BASE/VIAL
Dosage Form/Route: INJECTABLE;INJECTION
Application: A065364 | Product #001 | TE Code: AP
Applicant: FRESENIUS KABI USA LLC
Approved: Apr 17, 2008 | RLD: No | RS: No | Type: RX